FAERS Safety Report 14229132 (Version 1)
Quarter: 2017Q4

REPORT INFORMATION
  Report Type: Spontaneous
  Country: US (occurrence: US)
  Receive Date: 20171128
  Receipt Date: 20171128
  Transmission Date: 20180321
  Serious: No
  Sender: FDA-Public Use
  Company Number: US-ASTRAZENECA-2017SF19768

PATIENT
  Sex: Male
  Weight: 90.7 kg

DRUGS (1)
  1. DALIRESP [Suspect]
     Active Substance: ROFLUMILAST
     Route: 048

REACTIONS (5)
  - Decreased appetite [Unknown]
  - Drug dose omission [Unknown]
  - Weight decreased [Unknown]
  - Malaise [Unknown]
  - Skin odour abnormal [Unknown]
